FAERS Safety Report 18030610 (Version 21)
Quarter: 2024Q1

REPORT INFORMATION
  Report Type: Report from Study
  Country: US (occurrence: US)
  Receive Date: 20200715
  Receipt Date: 20240320
  Transmission Date: 20240409
  Serious: Yes (Hospitalization, Other)
  Sender: FDA-Public Use
  Company Number: US-TAKEDA-2020TUS030588

PATIENT
  Sex: Male
  Weight: 117 kg

DRUGS (12)
  1. IXAZOMIB [Suspect]
     Active Substance: IXAZOMIB
     Indication: Plasma cell myeloma refractory
     Dosage: 4 MILLIGRAM
     Route: 048
     Dates: start: 20200601
  2. IXAZOMIB [Suspect]
     Active Substance: IXAZOMIB
     Indication: Plasma cell myeloma
     Dosage: 4 MILLIGRAM
     Route: 048
  3. IXAZOMIB [Suspect]
     Active Substance: IXAZOMIB
     Dosage: 4 MILLIGRAM
     Route: 048
  4. IXAZOMIB [Suspect]
     Active Substance: IXAZOMIB
     Dosage: 4 MILLIGRAM
     Route: 048
  5. IXAZOMIB [Suspect]
     Active Substance: IXAZOMIB
     Dosage: 4 MILLIGRAM
     Route: 048
  6. IXAZOMIB [Suspect]
     Active Substance: IXAZOMIB
     Dosage: 4 MILLIGRAM
     Route: 048
  7. IXAZOMIB [Suspect]
     Active Substance: IXAZOMIB
     Dosage: 4 MILLIGRAM
     Route: 048
  8. POMALYST [Suspect]
     Active Substance: POMALIDOMIDE
     Indication: Plasma cell myeloma refractory
     Dosage: 4 MILLIGRAM
     Route: 048
     Dates: start: 201308
  9. POMALYST [Suspect]
     Active Substance: POMALIDOMIDE
     Indication: Plasma cell myeloma
     Dosage: 1 MILLIGRAM
     Route: 048
     Dates: start: 202002
  10. POMALYST [Suspect]
     Active Substance: POMALIDOMIDE
     Dosage: 3 MILLIGRAM
     Route: 048
     Dates: start: 202003
  11. POMALYST [Suspect]
     Active Substance: POMALIDOMIDE
     Dosage: 2 MILLIGRAM
     Route: 048
  12. XPOVIO [Suspect]
     Active Substance: SELINEXOR
     Indication: Product used for unknown indication
     Dosage: UNK
     Route: 065

REACTIONS (26)
  - Pneumonia [Unknown]
  - Thrombocytopenia [Unknown]
  - Fall [Unknown]
  - Face injury [Unknown]
  - Cardiac failure congestive [Unknown]
  - Shock [Unknown]
  - Seizure [Unknown]
  - Plasma cell myeloma [Unknown]
  - Renal impairment [Unknown]
  - Anaphylactic reaction [Unknown]
  - Nausea [Unknown]
  - Sinusitis [Unknown]
  - Peripheral swelling [Unknown]
  - Hypercoagulation [Unknown]
  - Full blood count abnormal [Unknown]
  - Nasal congestion [Recovering/Resolving]
  - Vertigo [Unknown]
  - Inner ear disorder [Unknown]
  - Hypoacusis [Unknown]
  - Fatigue [Unknown]
  - Asthenia [Unknown]
  - Dyspnoea [Unknown]
  - Dizziness [Unknown]
  - Decreased appetite [Unknown]
  - Product dose omission issue [Unknown]
  - Off label use [Unknown]

NARRATIVE: CASE EVENT DATE: 20200101
